FAERS Safety Report 22642060 (Version 1)
Quarter: 2023Q2

REPORT INFORMATION
  Report Type: Spontaneous
  Country: US (occurrence: None)
  Receive Date: 20230623
  Receipt Date: 20230623
  Transmission Date: 20230721
  Serious: Yes (Other)
  Sender: FDA-Public Use
  Company Number: None

PATIENT
  Age: 59 Year
  Sex: Male

DRUGS (1)
  1. PRALUENT [Suspect]
     Active Substance: ALIROCUMAB
     Dates: start: 20230530, end: 20230623

REACTIONS (2)
  - Musculoskeletal chest pain [None]
  - Therapy cessation [None]

NARRATIVE: CASE EVENT DATE: 20230623
